FAERS Safety Report 10171368 (Version 2)
Quarter: 2017Q4

REPORT INFORMATION
  Report Type: Spontaneous
  Country: CA (occurrence: CA)
  Receive Date: 20140514
  Receipt Date: 20171024
  Transmission Date: 20180320
  Serious: Yes (Hospitalization)
  Sender: FDA-Public Use
  Company Number: CA-009507513-1405CAN005434

PATIENT
  Age: 25 Year
  Sex: Male

DRUGS (2)
  1. REMERON [Suspect]
     Active Substance: MIRTAZAPINE
     Indication: DEPRESSION
     Dosage: 30 MILIGRAM; 1 EVERY 1 DAY, HS
     Route: 048
     Dates: start: 201304, end: 20131104
  2. REMERON [Suspect]
     Active Substance: MIRTAZAPINE
     Indication: ANXIETY

REACTIONS (3)
  - Abnormal dreams [Recovering/Resolving]
  - Nightmare [Recovering/Resolving]
  - Anxiety [Recovering/Resolving]

NARRATIVE: CASE EVENT DATE: 201309
